FAERS Safety Report 5095607-5 (Version None)
Quarter: 2006Q3

REPORT INFORMATION
  Report Type: 
  Country: None (occurrence: None)
  Receive Date: 20060901
  Receipt Date: 20060823
  Transmission Date: 20061208
  Serious: Yes (Hospitalization)
  Sender: FDA-Public Use
  Company Number: CM-MERCK-0608USA05734

PATIENT
  Age: 29 Year
  Sex: Male
  Weight: 57 kg

DRUGS (1)
  1. STROMECTOL [Suspect]
     Route: 048
     Dates: start: 20060523, end: 20060523

REACTIONS (8)
  - ADVERSE EVENT [None]
  - ASTHENIA [None]
  - DECUBITUS ULCER [None]
  - DIARRHOEA [None]
  - GLASGOW COMA SCALE ABNORMAL [None]
  - PRURITUS [None]
  - PYREXIA [None]
  - SWELLING FACE [None]
